FAERS Safety Report 8487859-6 (Version None)
Quarter: 2012Q3

REPORT INFORMATION
  Report Type: 
  Country: None (occurrence: None)
  Receive Date: 20120705
  Receipt Date: 20120621
  Transmission Date: 20120928
  Serious: Yes (Hospitalization, Other)
  Sender: FDA-Public Use
  Company Number: CA-ELI_LILLY_AND_COMPANY-CA201204005072

PATIENT
  Age: 52 Year
  Sex: Female
  Weight: 57 kg

DRUGS (14)
  1. PMS-VENLAFAXINE [Concomitant]
     Dosage: 75 MG, UNK
     Route: 048
  2. LOVENOX [Concomitant]
     Dosage: 40 MG, UNK
  3. DILAUDID [Concomitant]
     Dosage: 1 MG, UNK
  4. COLACE [Concomitant]
  5. FORTEO [Suspect]
     Indication: OSTEOPOROSIS
     Dosage: 20 UG, QD
     Route: 058
     Dates: start: 20110817, end: 20111202
  6. PANTOPRAZOLE SODIUM [Concomitant]
     Dosage: 40 MG, UNK
  7. VENTOLIN                                /SCH/ [Concomitant]
     Dosage: UNK, PRN
  8. ATIVAN [Concomitant]
     Dosage: 1 MG, EACH EVENING
     Route: 048
  9. SPIRIVA [Concomitant]
     Dosage: 18 UNK, UNK
  10. THIAMINE [Concomitant]
     Dosage: 100 MG, UNK
     Route: 048
  11. ADVAIR DISKUS 100/50 [Concomitant]
     Dosage: 500 DF, UNK
     Route: 055
  12. ACETAMINOPHEN [Concomitant]
     Dosage: 1 G, PRN
  13. CALCIUM [Concomitant]
     Dosage: 500 MG, UNK
  14. VITAMIN D [Concomitant]

REACTIONS (5)
  - LUNG NEOPLASM MALIGNANT [None]
  - ECCHYMOSIS [None]
  - PATHOLOGICAL FRACTURE [None]
  - FALL [None]
  - ANAEMIA [None]
